FAERS Safety Report 4987280-9 (Version None)
Quarter: 2006Q2

REPORT INFORMATION
  Report Type: 
  Country: None (occurrence: None)
  Receive Date: 20060501
  Receipt Date: 20060126
  Transmission Date: 20061013
  Serious: Yes (Hospitalization, Disabling)
  Sender: FDA-Public Use
  Company Number: US-MERCK-0601USA03579

PATIENT
  Age: 63 Year
  Sex: Male
  Weight: 89 kg

DRUGS (22)
  1. VIOXX [Suspect]
     Indication: ARTHRALGIA
     Route: 048
     Dates: start: 20010901, end: 20040125
  2. VIOXX [Suspect]
     Route: 048
     Dates: start: 20010901, end: 20040125
  3. LIPITOR [Concomitant]
     Indication: BLOOD CHOLESTEROL INCREASED
     Route: 065
     Dates: start: 19980101
  4. VASOTEC [Concomitant]
     Indication: HYPERTENSION
     Route: 065
     Dates: start: 19980101
  5. ZITHROMAX [Concomitant]
     Indication: BACTERIAL INFECTION
     Route: 065
  6. CIPROFLOXACIN HCL [Concomitant]
     Route: 065
  7. PROTONIX [Concomitant]
     Indication: DYSPEPSIA
     Route: 065
  8. MYTUSSIN [Concomitant]
     Route: 065
  9. OXYCODONE [Concomitant]
     Route: 065
  10. AUGMENTIN '125' [Concomitant]
     Indication: BACTERIAL INFECTION
     Route: 065
  11. PROMETHAZINE [Concomitant]
     Indication: HYPERSENSITIVITY
     Route: 065
  12. TENOX (TEMAZEPAM) [Concomitant]
     Indication: INSOMNIA
     Route: 065
  13. MACROBID [Concomitant]
     Indication: URINARY TRACT INFECTION
     Route: 065
  14. AVAPRO [Concomitant]
     Route: 065
     Dates: start: 20010101, end: 20030201
  15. NORVASC [Concomitant]
     Indication: HYPERTENSION
     Route: 065
     Dates: start: 20030121, end: 20030401
  16. COUMADIN [Concomitant]
     Indication: GASTROOESOPHAGEAL REFLUX DISEASE
     Route: 065
     Dates: start: 19990509
  17. KEFLEX [Concomitant]
     Route: 065
  18. REGLAN [Concomitant]
     Route: 065
  19. AVALIDE [Concomitant]
     Route: 065
  20. FLONASE [Concomitant]
     Route: 065
  21. GLUCOPHAGE [Concomitant]
     Indication: DIABETES MELLITUS
     Route: 065
  22. HYDROCODONE BITARTRATE [Concomitant]
     Route: 065
     Dates: start: 19980519

REACTIONS (7)
  - ANGINA PECTORIS [None]
  - BACTERIAL INFECTION [None]
  - GASTROOESOPHAGEAL REFLUX DISEASE [None]
  - MYOCARDIAL INFARCTION [None]
  - OVERDOSE [None]
  - ULCER HAEMORRHAGE [None]
  - URINARY TRACT INFECTION [None]
